FAERS Safety Report 15418909 (Version 3)
Quarter: 2021Q2

REPORT INFORMATION
  Report Type: Spontaneous
  Country: US (occurrence: US)
  Receive Date: 20180924
  Receipt Date: 20210502
  Transmission Date: 20210716
  Serious: No
  Sender: FDA-Public Use
  Company Number: US-SA-2018SA265329

PATIENT
  Age: 62 Year
  Sex: Female

DRUGS (2)
  1. AMPYRA [Suspect]
     Active Substance: DALFAMPRIDINE
     Indication: MULTIPLE SCLEROSIS
     Dosage: 10 MG, BID
     Route: 048
  2. AUBAGIO [Suspect]
     Active Substance: TERIFLUNOMIDE
     Indication: PRODUCT USED FOR UNKNOWN INDICATION
     Dosage: 7 MG, QD
     Route: 048

REACTIONS (2)
  - White blood cell count decreased [Unknown]
  - Product dose omission issue [Unknown]

NARRATIVE: CASE EVENT DATE: 201806
